FAERS Safety Report 7438925-5 (Version None)
Quarter: 2011Q2

REPORT INFORMATION
  Report Type: 
  Country: None (occurrence: None)
  Receive Date: 20110426
  Receipt Date: 20110414
  Transmission Date: 20111010
  Serious: Yes (Hospitalization)
  Sender: FDA-Public Use
  Company Number: CA-JNJFOC-20071205169

PATIENT
  Sex: Male
  Weight: 92.5 kg

DRUGS (26)
  1. CNTO 1275 [Suspect]
     Dosage: WEEK 12
     Route: 058
  2. CNTO 1275 [Suspect]
     Dosage: WEEK 16
     Route: 058
  3. PLACEBO [Suspect]
     Dosage: WEEK 0
     Route: 058
  4. CNTO 1275 [Suspect]
     Dosage: WEEK 52
     Route: 058
  5. CNTO 1275 [Suspect]
     Dosage: WEEK 48
     Route: 058
  6. CNTO 1275 [Suspect]
     Dosage: WEEK 28
     Route: 058
  7. CNTO 1275 [Suspect]
     Dosage: WEEK 64
     Route: 058
  8. CNTO 1275 [Suspect]
     Dosage: WEEK 60
     Route: 058
  9. SYMBICORT [Concomitant]
     Route: 055
  10. CNTO 1275 [Suspect]
     Dosage: WEEK 80
     Route: 058
  11. CNTO 1275 [Suspect]
     Dosage: WEEK 76
     Route: 058
  12. CNTO 1275 [Suspect]
     Dosage: WEEK 44
     Route: 058
  13. NASONEX [Concomitant]
     Route: 045
  14. COVERSYL [Concomitant]
     Route: 048
  15. CNTO 1275 [Suspect]
     Indication: PSORIASIS
     Dosage: WEEK 68
     Route: 058
  16. CNTO 1275 [Suspect]
     Dosage: WEEK 56
     Route: 058
  17. SERC [Concomitant]
     Route: 048
  18. CELEBREX [Concomitant]
     Route: 048
  19. CNTO 1275 [Suspect]
     Dosage: WEEK 72
     Route: 058
  20. CNTO 1275 [Suspect]
     Dosage: WEEK 40
     Route: 058
  21. CNTO 1275 [Suspect]
     Dosage: WEEK 36
     Route: 058
  22. PLACEBO [Suspect]
     Indication: PSORIASIS
     Dosage: WEEK 4
     Route: 058
  23. PULMICORT [Concomitant]
     Route: 055
  24. LIPITOR [Concomitant]
     Route: 048
  25. NITROGLYCERIN SPRAY [Concomitant]
  26. VENTOLIN [Concomitant]
     Route: 055

REACTIONS (3)
  - BENIGN PROSTATIC HYPERPLASIA [None]
  - PYELONEPHRITIS [None]
  - DERMATITIS ALLERGIC [None]
